FAERS Safety Report 5148952-9 (Version None)
Quarter: 2006Q4

REPORT INFORMATION
  Report Type: 
  Country: None (occurrence: None)
  Receive Date: 20061108
  Receipt Date: 20061026
  Transmission Date: 20070319
  Serious: Yes (Hospitalization)
  Sender: FDA-Public Use
  Company Number: 2006PV021982

PATIENT
  Age: 73 Year
  Sex: Male

DRUGS (11)
  1. BYETTA [Suspect]
     Indication: DIABETES MELLITUS NON-INSULIN-DEPENDENT
     Dosage: 10 MCG;BID;SC; 5 MCB;BID;SC
     Route: 058
     Dates: start: 20060501, end: 20060601
  2. BYETTA [Suspect]
     Indication: DIABETES MELLITUS NON-INSULIN-DEPENDENT
     Dosage: 10 MCG;BID;SC; 5 MCB;BID;SC
     Route: 058
     Dates: start: 20060601
  3. GLUCOPHAGE [Concomitant]
  4. GLYSET [Concomitant]
  5. METFORMIN [Concomitant]
  6. ZOCOR [Concomitant]
  7. DITROPAN [Concomitant]
  8. PROTONIX [Concomitant]
  9. BUPROPION HCL [Concomitant]
  10. LISINOPRIL [Concomitant]
  11. ASPIRIN [Concomitant]

REACTIONS (5)
  - ANGINA PECTORIS [None]
  - ARTERIAL OCCLUSIVE DISEASE [None]
  - BLOOD GLUCOSE INCREASED [None]
  - MYOCARDIAL INFARCTION [None]
  - OEDEMA PERIPHERAL [None]
